FAERS Safety Report 6709953-X (Version None)
Quarter: 2010Q2

REPORT INFORMATION
  Report Type: 
  Country: None (occurrence: None)
  Receive Date: 20100503
  Receipt Date: 20100503
  Transmission Date: 20101027
  Serious: Yes (Life-Threatening)
  Sender: FDA-Public Use
  Company Number: None

PATIENT
  Age: 5 Year
  Sex: Male
  Weight: 21.7727 kg

DRUGS (2)
  1. TYLENOL (CAPLET) [Suspect]
     Indication: COUGH
     Dosage: 1 1/2 TSP EVERY 6 HRS PO
     Route: 048
     Dates: start: 20100406, end: 20100407
  2. TYLENOL (CAPLET) [Suspect]
     Indication: NASOPHARYNGITIS
     Dosage: 1 1/2 TSP EVERY 6 HRS PO
     Route: 048
     Dates: start: 20100406, end: 20100407

REACTIONS (1)
  - URTICARIA [None]
